FAERS Safety Report 8048037-8 (Version None)
Quarter: 2012Q1

REPORT INFORMATION
  Report Type: 
  Country: None (occurrence: None)
  Receive Date: 20120117
  Receipt Date: 20120106
  Transmission Date: 20120608
  Serious: Yes (Hospitalization)
  Sender: FDA-Public Use
  Company Number: US-BIOGENIDEC-2011BI047882

PATIENT
  Age: 31 Year
  Sex: Female
  Weight: 77 kg

DRUGS (7)
  1. VITAMIN D [Concomitant]
  2. PREDNISONE [Concomitant]
  3. FISH OIL [Concomitant]
  4. FOLIC ACID [Concomitant]
  5. CALCIUM [Concomitant]
  6. PERCOCET [Concomitant]
  7. TYSABRI [Suspect]
     Indication: CROHN'S DISEASE
     Route: 042
     Dates: start: 20110817

REACTIONS (1)
  - LIGAMENT RUPTURE [None]
